FAERS Safety Report 6666996-2 (Version None)
Quarter: 2010Q1

REPORT INFORMATION
  Report Type: 
  Country: None (occurrence: None)
  Receive Date: 20100331
  Receipt Date: 20100324
  Transmission Date: 20100710
  Serious: Yes (Other)
  Sender: FDA-Public Use
  Company Number: 2010SP018094

PATIENT
  Age: 57 Year
  Sex: Male

DRUGS (1)
  1. PEGETRON         (PEGYLATED INTERFERON ALFA-2B) W/RIBAVIRIN) [Suspect]
     Indication: HEPATITIS C
     Dosage: 0.5 ML
     Dates: start: 20100126, end: 20100323

REACTIONS (6)
  - ABDOMINAL DISCOMFORT [None]
  - DECREASED APPETITE [None]
  - DIARRHOEA [None]
  - GAIT DISTURBANCE [None]
  - PAIN [None]
  - WEIGHT DECREASED [None]
